FAERS Safety Report 7315680-0 (Version None)
Quarter: 2011Q1

REPORT INFORMATION
  Report Type: 
  Country: None (occurrence: None)
  Receive Date: 20110225
  Receipt Date: 20110218
  Transmission Date: 20110831
  Serious: Yes (Hospitalization)
  Sender: FDA-Public Use
  Company Number: US-US-EMD SERONO, INC.-7042915

PATIENT
  Sex: Female
  Weight: 42 kg

DRUGS (5)
  1. REBIF [Suspect]
     Indication: MULTIPLE SCLEROSIS
     Route: 058
     Dates: start: 20090217, end: 20101214
  2. MACROBID [Concomitant]
     Indication: BLADDER DISORDER
  3. PAIN MEDICATIONS [Concomitant]
     Indication: TRIGEMINAL NEURALGIA
  4. CHOLESTEROL MEDICATION [Concomitant]
     Indication: BLOOD CHOLESTEROL ABNORMAL
  5. MULTI-VITAMIN [Concomitant]

REACTIONS (3)
  - MULTIPLE SCLEROSIS RELAPSE [None]
  - PANCYTOPENIA [None]
  - URINARY TRACT INFECTION [None]
